FAERS Safety Report 23108509 (Version 1)
Quarter: 2023Q4

REPORT INFORMATION
  Report Type: Spontaneous
  Country: US (occurrence: None)
  Receive Date: 20231024
  Receipt Date: 20231024
  Transmission Date: 20240109
  Serious: Yes (Hospitalization)
  Sender: FDA-Public Use
  Company Number: None

PATIENT
  Age: 65 Year
  Sex: Male
  Weight: 107 kg

DRUGS (3)
  1. BELBUCA [Suspect]
     Active Substance: BUPRENORPHINE HYDROCHLORIDE
     Dosage: FREQUENCY : TWICE A DAY;?OTHER ROUTE : OTHER;?
     Route: 050
     Dates: start: 20220627, end: 20220727
  2. TRAZODONE HCL [Suspect]
     Active Substance: TRAZODONE HYDROCHLORIDE
     Dates: start: 20210915, end: 20220727
  3. DULOXETINE [Suspect]
     Active Substance: DULOXETINE

REACTIONS (2)
  - Mental status changes [None]
  - Feeling abnormal [None]

NARRATIVE: CASE EVENT DATE: 20220728
